FAERS Safety Report 5246203-8 (Version None)
Quarter: 2007Q1

REPORT INFORMATION
  Report Type: 
  Country: None (occurrence: None)
  Receive Date: 20070220
  Receipt Date: 20070208
  Transmission Date: 20070707
  Serious: Yes (Death)
  Sender: FDA-Public Use
  Company Number: 2007JP000588

PATIENT

DRUGS (1)
  1. PROGRAF [Suspect]
     Indication: RHEUMATOID ARTHRITIS

REACTIONS (1)
  - SEPSIS [None]
